FAERS Safety Report 18323282 (Version 3)
Quarter: 2021Q2

REPORT INFORMATION
  Report Type: Spontaneous
  Country: CA (occurrence: CA)
  Receive Date: 20200928
  Receipt Date: 20210427
  Transmission Date: 20210717
  Serious: Yes (Other)
  Sender: FDA-Public Use
  Company Number: CA-JNJFOC-20200934180

PATIENT
  Age: 70 Year
  Sex: Male

DRUGS (9)
  1. INDAPAMIDE. [Concomitant]
     Active Substance: INDAPAMIDE
     Route: 065
  2. ENTOCORT [Concomitant]
     Active Substance: BUDESONIDE
     Route: 065
  3. SOLU?MEDROL [Concomitant]
     Active Substance: METHYLPREDNISOLONE SODIUM SUCCINATE
     Indication: PREMEDICATION
     Route: 042
  4. PREDNISONE. [Concomitant]
     Active Substance: PREDNISONE
     Indication: PRODUCT USED FOR UNKNOWN INDICATION
     Route: 065
  5. PENTASA [Concomitant]
     Active Substance: MESALAMINE
     Indication: PRODUCT USED FOR UNKNOWN INDICATION
     Route: 065
  6. REMICADE [Suspect]
     Active Substance: INFLIXIMAB
     Route: 042
  7. BENADRYL [Concomitant]
     Active Substance: DIPHENHYDRAMINE HYDROCHLORIDE
     Indication: PREMEDICATION
     Route: 048
  8. PREDNISONE. [Concomitant]
     Active Substance: PREDNISONE
     Route: 065
  9. REMICADE [Suspect]
     Active Substance: INFLIXIMAB
     Indication: COLITIS ULCERATIVE
     Route: 042

REACTIONS (24)
  - Blood pressure fluctuation [Not Recovered/Not Resolved]
  - Injection site mass [Not Recovered/Not Resolved]
  - Cough [Not Recovered/Not Resolved]
  - Productive cough [Not Recovered/Not Resolved]
  - Dry skin [Not Recovered/Not Resolved]
  - Condition aggravated [Not Recovered/Not Resolved]
  - Off label use [Not Recovered/Not Resolved]
  - Bowel movement irregularity [Not Recovered/Not Resolved]
  - Skin lesion [Not Recovered/Not Resolved]
  - Diarrhoea [Not Recovered/Not Resolved]
  - Fatigue [Not Recovered/Not Resolved]
  - Rash macular [Not Recovered/Not Resolved]
  - Urticaria [Not Recovered/Not Resolved]
  - Asthenia [Not Recovered/Not Resolved]
  - Weight decreased [Not Recovered/Not Resolved]
  - Intentional product use issue [Not Recovered/Not Resolved]
  - Inappropriate schedule of product administration [Not Recovered/Not Resolved]
  - Pruritus [Not Recovered/Not Resolved]
  - Drug ineffective [Not Recovered/Not Resolved]
  - Heart rate decreased [Unknown]
  - Decreased appetite [Not Recovered/Not Resolved]
  - Rash pruritic [Not Recovered/Not Resolved]
  - Drug level below therapeutic [Not Recovered/Not Resolved]
  - Blood pressure increased [Unknown]
